FAERS Safety Report 23105320 (Version 1)
Quarter: 2023Q4

REPORT INFORMATION
  Report Type: Spontaneous
  Country: US (occurrence: US)
  Receive Date: 20231025
  Receipt Date: 20231025
  Transmission Date: 20240110
  Serious: No
  Sender: FDA-Public Use
  Company Number: US-HISAMITSU PHARMACEUTICAL CO., INC.-2023-NOV-US000841

PATIENT
  Age: 12 Year
  Sex: Male

DRUGS (1)
  1. SECUADO [Suspect]
     Active Substance: ASENAPINE
     Indication: Product used for unknown indication
     Dosage: UNKNOWN
     Route: 062

REACTIONS (3)
  - Intentional product use issue [Unknown]
  - Off label use [Not Recovered/Not Resolved]
  - No adverse event [Unknown]
